FAERS Safety Report 17604262 (Version 1)
Quarter: 2020Q1

REPORT INFORMATION
  Report Type: Spontaneous
  Country: JP (occurrence: JP)
  Receive Date: 20200331
  Receipt Date: 20200331
  Transmission Date: 20200409
  Serious: Yes (Hospitalization)
  Sender: FDA-Public Use
  Company Number: JP-PFIZER INC-2020128863

PATIENT

DRUGS (4)
  1. CABASER 0.25MG [Suspect]
     Active Substance: CABERGOLINE
     Indication: PARKINSON^S DISEASE
     Dosage: 9 TABLETS, DAILY (PRESCRIBED TO TAKE IN THE MORNING, NOON AND EVENING BUT TOOK 5 TIMES OR 6 TIMES)
     Route: 048
  2. ARTANE [Suspect]
     Active Substance: TRIHEXYPHENIDYL HYDROCHLORIDE
     Indication: PARKINSON^S DISEASE
     Dosage: 4 TABLETS, DAILY (IN THE MORNING, NOON AND BEFORE BEDTIME)
     Route: 048
  3. PERMAX [Concomitant]
     Active Substance: PERGOLIDE
     Indication: PARKINSON^S DISEASE
     Dosage: 9 DF, DAILY (DIVIDED IN MANY DOSES)
     Route: 048
  4. MENESIT [Concomitant]
     Active Substance: CARBIDOPA\LEVODOPA
     Indication: PARKINSON^S DISEASE
     Dosage: 4 DF, DIVIDED IN MANY DOSES
     Route: 048

REACTIONS (3)
  - Road traffic accident [Unknown]
  - Fall [Unknown]
  - Fracture [Unknown]
